FAERS Safety Report 9357727 (Version 1)
Quarter: 2013Q2

REPORT INFORMATION
  Report Type: Spontaneous
  Country: FR (occurrence: FR)
  Receive Date: 20130620
  Receipt Date: 20130620
  Transmission Date: 20140414
  Serious: Yes (Hospitalization, Other)
  Sender: FDA-Public Use
  Company Number: FR-PFIZER INC-2013180577

PATIENT
  Age: 50 Year
  Sex: Male

DRUGS (5)
  1. FLUOROURACILE PFIZER [Suspect]
     Indication: ADENOCARCINOMA OF COLON
     Dosage: 5180 MG, 1X/DAY
     Dates: start: 20120504, end: 20120505
  2. IRINOTECAN MYLAN [Suspect]
     Indication: ADENOCARCINOMA OF COLON
     Dosage: 335 MG, CYCLIC
     Route: 042
     Dates: start: 20120503, end: 20120505
  3. AVASTIN [Suspect]
     Indication: ADENOCARCINOMA OF COLON
     Dosage: 360 MG, CYCLIC
     Route: 042
     Dates: start: 20120504, end: 20120505
  4. FOLINIC ACID [Concomitant]
     Indication: ADENOCARCINOMA OF COLON
     Dosage: UNK
     Dates: start: 201205, end: 20120505
  5. IXPRIM [Concomitant]

REACTIONS (8)
  - Hypersensitivity [Recovered/Resolved]
  - Pyrexia [Recovered/Resolved]
  - Arthralgia [Recovered/Resolved]
  - Diarrhoea [Recovering/Resolving]
  - Nausea [Recovered/Resolved]
  - Chills [Unknown]
  - Fatigue [Unknown]
  - Abdominal pain [Unknown]
